FAERS Safety Report 9145427 (Version 2)
Quarter: 2014Q1

REPORT INFORMATION
  Report Type: Spontaneous
  Country: US (occurrence: US)
  Receive Date: 20130307
  Receipt Date: 20140109
  Transmission Date: 20141002
  Serious: Yes (Other)
  Sender: FDA-Public Use
  Company Number: US-BAYER-2013-028174

PATIENT
  Age: 44 Year
  Sex: Female

DRUGS (3)
  1. YASMIN [Suspect]
     Indication: CONTRACEPTION
  2. YAZ [Suspect]
  3. FAMOTIDINE [Concomitant]
     Indication: DYSPEPSIA
     Dosage: 40 MG, 1 TABLET 2 TIMES DAILY AS NEEDED
     Dates: start: 20110303

REACTIONS (7)
  - Cholecystectomy [None]
  - Cholecystitis acute [None]
  - Pulmonary embolism [None]
  - Thrombosis [None]
  - Injury [None]
  - Pain [None]
  - Emotional distress [None]
